FAERS Safety Report 11214438 (Version 1)
Quarter: 2015Q2

REPORT INFORMATION
  Report Type: Spontaneous
  Country: BR (occurrence: BR)
  Receive Date: 20150624
  Receipt Date: 20150624
  Transmission Date: 20150821
  Serious: Yes (Other)
  Sender: FDA-Public Use
  Company Number: BR-ACCORD-031543

PATIENT
  Age: 52 Year
  Sex: Male
  Weight: 61.7 kg

DRUGS (6)
  1. PACLITAXEL/PACLITAXEL LIPOSOME [Suspect]
     Active Substance: PACLITAXEL
     Indication: OESOPHAGEAL CARCINOMA
     Dosage: 300 MG, 1ST CYCLE
     Route: 042
     Dates: start: 20150518, end: 20150608
  2. ONDANSETRON/ONDANSETRON HYDROCHLORIDE [Concomitant]
     Indication: PROPHYLAXIS
     Dosage: 8 MG/4 ML, RECEIVED ALONG SALINE AND DEXAMETHASONE
     Route: 042
     Dates: start: 20150608, end: 20150608
  3. RANITIDINE [Concomitant]
     Active Substance: RANITIDINE\RANITIDINE HYDROCHLORIDE
     Indication: PROPHYLAXIS
     Dosage: STRENGTH: 50MG/2ML, 1 AMPOULE
     Route: 042
     Dates: start: 20150608, end: 20150608
  4. CARBOPLATIN. [Concomitant]
     Active Substance: CARBOPLATIN
     Indication: OESOPHAGEAL CARCINOMA
     Dates: start: 20150518
  5. DIFENIDRIN [Concomitant]
     Active Substance: DIPHENHYDRAMINE
     Indication: PROPHYLAXIS
     Dosage: 1 AMPOULE
     Route: 042
     Dates: start: 20150608, end: 20150608
  6. DEXAMETHASONE. [Concomitant]
     Active Substance: DEXAMETHASONE
     Indication: PROPHYLAXIS
     Dosage: 1 AMPOULE, RECEIVED ALONG WITH ONANSETRON AND SALINE
     Route: 042
     Dates: start: 20150608, end: 20150608

REACTIONS (4)
  - Off label use [Unknown]
  - Nausea [Recovered/Resolved]
  - Respiratory distress [Recovered/Resolved]
  - Dizziness [Recovered/Resolved]

NARRATIVE: CASE EVENT DATE: 20150608
